FAERS Safety Report 9804636 (Version 1)
Quarter: 2014Q1

REPORT INFORMATION
  Report Type: Spontaneous
  Country: GB (occurrence: GB)
  Receive Date: 20140108
  Receipt Date: 20140108
  Transmission Date: 20141002
  Serious: Yes (Hospitalization, Disabling, Other)
  Sender: FDA-Public Use
  Company Number: GB-PFIZER INC-2014004333

PATIENT
  Age: 83 Year
  Sex: Male

DRUGS (4)
  1. DOXAZOSIN MESILATE [Suspect]
     Indication: HYPERTENSION
     Dosage: 4 MG TWICE DAILY
     Route: 048
     Dates: start: 200610, end: 20131209
  2. ASPIRIN [Concomitant]
     Indication: ANGINA PECTORIS
     Dosage: 75 MG, 1X/DAY
     Route: 048
  3. CO-AMILOFRUSE [Concomitant]
     Indication: CARDIAC FAILURE
     Dosage: [AMILORIDE HYDROCHLORIDE 40 MG]/ [FRUSEMIDE 5 MG] 1 DOSE FORM DAILY
     Route: 048
     Dates: end: 201312
  4. SIMVASTATIN [Concomitant]
     Indication: ANGINA PECTORIS
     Dosage: 20MG 1X/DAY (AT NIGHT)
     Route: 048

REACTIONS (2)
  - Tremor [Recovered/Resolved]
  - Movement disorder [Unknown]
